FAERS Safety Report 25376929 (Version 1)
Quarter: 2025Q2

REPORT INFORMATION
  Report Type: Report from Study
  Country: BG (occurrence: BG)
  Receive Date: 20250530
  Receipt Date: 20250530
  Transmission Date: 20250717
  Serious: Yes (Death)
  Sender: ABBVIE
  Company Number: BG-ABBVIE-6304406

PATIENT
  Age: 70 Year
  Sex: Male

DRUGS (1)
  1. SKYRIZI [Suspect]
     Active Substance: RISANKIZUMAB-RZAA
     Indication: Product used for unknown indication
     Route: 058
     Dates: start: 202205

REACTIONS (1)
  - Death [Fatal]
